FAERS Safety Report 5844596-1 (Version None)
Quarter: 2008Q3

REPORT INFORMATION
  Report Type: 
  Country: None (occurrence: None)
  Receive Date: 20080812
  Receipt Date: 20080725
  Transmission Date: 20090109
  Serious: Yes (Hospitalization)
  Sender: FDA-Public Use
  Company Number: 2008BI017626

PATIENT
  Age: 52 Year
  Sex: Male

DRUGS (8)
  1. ZEVALIN [Suspect]
     Indication: MANTLE CELL LYMPHOMA
     Dosage: 1X; IV
     Route: 042
     Dates: start: 20080327, end: 20080327
  2. RITUXIMAB [Concomitant]
  3. CARMUSTINE [Concomitant]
  4. ARACYTINE [Concomitant]
  5. ETOPOSIDE [Concomitant]
  6. MELPHALAN [Concomitant]
  7. TRIFLUCAN [Concomitant]
  8. ZELITREX [Concomitant]

REACTIONS (9)
  - CULTURE STOOL POSITIVE [None]
  - DIARRHOEA INFECTIOUS [None]
  - ENTEROCOCCAL INFECTION [None]
  - HYPERSENSITIVITY [None]
  - MALAISE [None]
  - PSEUDOMONAS INFECTION [None]
  - REFUSAL OF TREATMENT BY PATIENT [None]
  - STEM CELL TRANSPLANT [None]
  - WEIGHT DECREASED [None]
